FAERS Safety Report 7903081-3 (Version None)
Quarter: 2011Q4

REPORT INFORMATION
  Report Type: 
  Country: None (occurrence: None)
  Receive Date: 20111107
  Receipt Date: 20111025
  Transmission Date: 20120403
  Serious: Yes (Hospitalization)
  Sender: FDA-Public Use
  Company Number: 1000025103

PATIENT
  Age: 80 Year
  Sex: Female

DRUGS (5)
  1. MEMANTINE HYDROCHLORIDE [Suspect]
     Indication: DEMENTIA ALZHEIMER'S TYPE
     Dosage: 10 MG (10 MG, 1 IN 1 D),ORAL
     Route: 048
     Dates: start: 20110719
  2. DONEPEZIL (DONEPEZIL) (DONEPEZIL) [Concomitant]
  3. MEMANTINE HYDROCHLORIDE [Suspect]
     Indication: DEMENTIA ALZHEIMER'S TYPE
     Dosage: 20 MG (20 MG, 1 IN 1 D),ORAL; 15 MG (15 MG, 1 IN 1 D),ORAL
     Route: 048
     Dates: start: 20110526, end: 20110530
  4. MEMANTINE HYDROCHLORIDE [Suspect]
     Indication: DEMENTIA ALZHEIMER'S TYPE
     Dosage: 20 MG (20 MG, 1 IN 1 D),ORAL; 15 MG (15 MG, 1 IN 1 D),ORAL
     Route: 048
     Dates: start: 20110531, end: 20110718
  5. MEMANTINE HYDROCHLORIDE [Suspect]
     Indication: DEMENTIA ALZHEIMER'S TYPE
     Dosage: TITRATION DOSE, ORAL
     Route: 048
     Dates: start: 20110429, end: 20110525

REACTIONS (6)
  - MOBILITY DECREASED [None]
  - DIZZINESS [None]
  - CONFUSIONAL STATE [None]
  - FALL [None]
  - FATIGUE [None]
  - SOMNOLENCE [None]
